FAERS Safety Report 12646988 (Version 2)
Quarter: 2016Q3

REPORT INFORMATION
  Report Type: Spontaneous
  Country: US (occurrence: US)
  Receive Date: 20160812
  Receipt Date: 20160930
  Transmission Date: 20161109
  Serious: No
  Sender: FDA-Public Use
  Company Number: US-ASTRAZENECA-2016SE84215

PATIENT
  Sex: Male
  Weight: 79.4 kg

DRUGS (4)
  1. BLOOD PRESSURE MEDICATION [Concomitant]
     Active Substance: UNSPECIFIED INGREDIENT
     Indication: BLOOD PRESSURE ABNORMAL
  2. SYMBICORT [Suspect]
     Active Substance: BUDESONIDE\FORMOTEROL FUMARATE DIHYDRATE
     Indication: ASTHMA
     Dosage: 160-4.5MCG, PRESCRIBED TWO PUFFS TWICE A DAY BUT WAS TAKING ONE PUFF IN THE MORNING, FOR AT LEAST...
     Route: 055
     Dates: start: 2016
  3. BYSTOLIC [Concomitant]
     Active Substance: NEBIVOLOL HYDROCHLORIDE
     Indication: HYPERTENSION
     Route: 048
  4. NEBULIZER [Concomitant]
     Active Substance: DEVICE
     Dosage: TWICE A DAY

REACTIONS (5)
  - Dyspnoea [Not Recovered/Not Resolved]
  - Intentional product use issue [Unknown]
  - Drug ineffective [Not Recovered/Not Resolved]
  - Device use error [Unknown]
  - Device malfunction [Not Recovered/Not Resolved]
